FAERS Safety Report 11815365 (Version 3)
Quarter: 2016Q1

REPORT INFORMATION
  Report Type: Report from Study
  Country: IT (occurrence: IT)
  Receive Date: 20151209
  Receipt Date: 20160129
  Transmission Date: 20160525
  Serious: Yes (Hospitalization, Other)
  Sender: FDA-Public Use
  Company Number: IT-GILEAD-2015-0185727

PATIENT
  Sex: Female
  Weight: 44 kg

DRUGS (16)
  1. RITUXIMAB [Suspect]
     Active Substance: RITUXIMAB
     Dosage: 550 MG, Q1WK
     Route: 042
     Dates: start: 20150617, end: 20150617
  2. NOVONORM [Concomitant]
     Active Substance: REPAGLINIDE
     Indication: DIABETES MELLITUS
     Route: 048
     Dates: start: 20151023, end: 20151201
  3. RITUXIMAB [Suspect]
     Active Substance: RITUXIMAB
     Dosage: 550 MG, Q1WK
     Route: 042
     Dates: start: 20150603, end: 20150603
  4. IMODIUM [Concomitant]
     Active Substance: LOPERAMIDE HYDROCHLORIDE
     Route: 048
     Dates: start: 20151127, end: 20151201
  5. IDELALISIB [Suspect]
     Active Substance: IDELALISIB
     Indication: CHRONIC LYMPHOCYTIC LEUKAEMIA
     Dosage: 150 MG, BID
     Route: 048
     Dates: start: 20150520, end: 20150827
  6. RITUXIMAB [Suspect]
     Active Substance: RITUXIMAB
     Dosage: 550 MG, Q1WK
     Route: 042
     Dates: start: 20150625, end: 20150625
  7. RITUXIMAB [Suspect]
     Active Substance: RITUXIMAB
     Dosage: 550 MG, Q1WK
     Route: 042
     Dates: start: 20150708, end: 20150708
  8. IMODIUM [Concomitant]
     Active Substance: LOPERAMIDE HYDROCHLORIDE
     Indication: DIARRHOEA
     Route: 048
     Dates: start: 20150727, end: 20151201
  9. IDELALISIB [Suspect]
     Active Substance: IDELALISIB
     Dosage: 100 MG, BID
     Route: 048
     Dates: start: 20151012, end: 20151127
  10. RITUXIMAB [Suspect]
     Active Substance: RITUXIMAB
     Dosage: 550 MG, Q1WK
     Route: 042
     Dates: start: 20150527, end: 20150527
  11. IDELALISIB [Suspect]
     Active Substance: IDELALISIB
     Dosage: 100 MG, BID
     Route: 048
     Dates: start: 20151230
  12. RITUXIMAB [Suspect]
     Active Substance: RITUXIMAB
     Dosage: 550 MG, Q1WK
     Route: 042
     Dates: start: 20150610, end: 20150610
  13. RITUXIMAB [Suspect]
     Active Substance: RITUXIMAB
     Dosage: 550 MG, Q1WK
     Route: 042
     Dates: start: 20150701, end: 20150701
  14. INSULINE                           /01223401/ [Concomitant]
     Active Substance: INSULIN NOS
     Indication: DIABETES MELLITUS
     Route: 058
     Dates: start: 20150923
  15. MODURETIC 5-50 [Concomitant]
     Active Substance: AMILORIDE HYDROCHLORIDE\HYDROCHLOROTHIAZIDE
     Indication: HYPERTENSION
     Route: 048
     Dates: start: 20150930
  16. RITUXIMAB [Suspect]
     Active Substance: RITUXIMAB
     Indication: CHRONIC LYMPHOCYTIC LEUKAEMIA
     Dosage: 550 MG, Q1WK
     Route: 042
     Dates: start: 20150520, end: 20150520

REACTIONS (2)
  - Hyperglycaemia [Recovered/Resolved]
  - Diabetic ketoacidosis [Recovered/Resolved]

NARRATIVE: CASE EVENT DATE: 20151201
